FAERS Safety Report 9193655 (Version 2)
Quarter: 2013Q2

REPORT INFORMATION
  Report Type: Spontaneous
  Country: JP (occurrence: JP)
  Receive Date: 20130327
  Receipt Date: 20130410
  Transmission Date: 20140414
  Serious: Yes (Other)
  Sender: FDA-Public Use
  Company Number: JP-GLAXOSMITHKLINE-B0877142A

PATIENT
  Age: 35 Year
  Sex: Male

DRUGS (1)
  1. RELENZA [Suspect]
     Indication: PRODUCT USED FOR UNKNOWN INDICATION
     Route: 055

REACTIONS (6)
  - Muscular weakness [Not Recovered/Not Resolved]
  - Diarrhoea [Unknown]
  - Myelitis [Unknown]
  - Guillain-Barre syndrome [Unknown]
  - Miller Fisher syndrome [Unknown]
  - Neuropathy peripheral [Unknown]
